FAERS Safety Report 6308675-7 (Version None)
Quarter: 2009Q3

REPORT INFORMATION
  Report Type: 
  Country: None (occurrence: None)
  Receive Date: 20090811
  Receipt Date: 20090526
  Transmission Date: 20100115
  Serious: No
  Sender: FDA-Public Use
  Company Number: 1000006500

PATIENT

DRUGS (1)
  1. SAVELLA [Suspect]
     Indication: FIBROMYALGIA

REACTIONS (2)
  - HEART RATE INCREASED [None]
  - INSOMNIA [None]
